FAERS Safety Report 7170766-9 (Version None)
Quarter: 2010Q4

REPORT INFORMATION
  Report Type: 
  Country: None (occurrence: None)
  Receive Date: 20101214
  Receipt Date: 20101214
  Transmission Date: 20110411
  Serious: Yes (Hospitalization)
  Sender: FDA-Public Use
  Company Number: None

PATIENT
  Age: 38 Year
  Sex: Male

DRUGS (1)
  1. REMICAIDE 100MG [Suspect]
     Indication: CROHN'S DISEASE
     Dosage: 600MG IV
     Route: 042
     Dates: start: 20100427, end: 20100427

REACTIONS (7)
  - ARTHRALGIA [None]
  - BACK PAIN [None]
  - CHILLS [None]
  - EAR PAIN [None]
  - INFUSION RELATED REACTION [None]
  - PAIN IN EXTREMITY [None]
  - PAIN IN JAW [None]
